FAERS Safety Report 12106166 (Version 1)
Quarter: 2016Q1

REPORT INFORMATION
  Report Type: Report from Study
  Country: US (occurrence: US)
  Receive Date: 20160223
  Receipt Date: 20160223
  Transmission Date: 20160526
  Serious: Yes (Death, Other)
  Sender: FDA-Public Use
  Company Number: US-GILEAD-2016-0199804

PATIENT
  Age: 68 Year
  Sex: Male

DRUGS (1)
  1. AMBRISENTAN [Suspect]
     Active Substance: AMBRISENTAN
     Indication: COR PULMONALE
     Dosage: 10 MG, QD
     Route: 065
     Dates: start: 20150831, end: 20160212

REACTIONS (1)
  - Death [Fatal]
